FAERS Safety Report 13323171 (Version 5)
Quarter: 2017Q2

REPORT INFORMATION
  Report Type: Report from Study
  Country: US (occurrence: US)
  Receive Date: 20170309
  Receipt Date: 20170420
  Transmission Date: 20170830
  Serious: Yes (Hospitalization, Other)
  Sender: FDA-Public Use
  Company Number: US-GILEAD-2017-0258565

PATIENT
  Age: 52 Year
  Sex: Female

DRUGS (3)
  1. AMBRISENTAN [Suspect]
     Active Substance: AMBRISENTAN
     Dosage: 10 MG, QD
     Route: 065
     Dates: start: 20170201
  2. AMBRISENTAN [Suspect]
     Active Substance: AMBRISENTAN
     Indication: PRODUCT USED FOR UNKNOWN INDICATION
     Dosage: 5 MG, QD
     Route: 065
     Dates: start: 20170201
  3. AMBRISENTAN [Suspect]
     Active Substance: AMBRISENTAN
     Dosage: 5 MG, QD
     Route: 065

REACTIONS (11)
  - Nausea [Unknown]
  - Lung disorder [Unknown]
  - Cardiac disorder [Unknown]
  - Abdominal distension [Unknown]
  - Waist circumference increased [Unknown]
  - Enteritis infectious [Recovered/Resolved]
  - Gastric disorder [Unknown]
  - Therapy change [Unknown]
  - Colitis [Unknown]
  - Drug ineffective [Unknown]
  - Weight decreased [Unknown]
